FAERS Safety Report 22354071 (Version 2)
Quarter: 2023Q2

REPORT INFORMATION
  Report Type: Spontaneous
  Country: FR (occurrence: None)
  Receive Date: 20230523
  Receipt Date: 20230614
  Transmission Date: 20230721
  Serious: Yes (Death, Other)
  Sender: FDA-Public Use
  Company Number: FR-Unichem Pharmaceuticals (USA) Inc-UCM202305-000600

PATIENT
  Age: 11 Month
  Sex: Male

DRUGS (1)
  1. TRAMADOL HCL [Suspect]
     Active Substance: TRAMADOL HYDROCHLORIDE
     Indication: Product used for unknown indication
     Dosage: ACCIDENTAL EXPOSURE OF TRAMADOL WITH UNKNOWN DOSE

REACTIONS (6)
  - Cyanosis [Fatal]
  - Visceral congestion [Fatal]
  - Toxicity to various agents [Fatal]
  - Respiratory distress [Fatal]
  - Drug level above therapeutic [Fatal]
  - Accidental exposure to product by child [Unknown]
